FAERS Safety Report 14900330 (Version 1)
Quarter: 2018Q2

REPORT INFORMATION
  Report Type: Spontaneous
  Country: US (occurrence: US)
  Receive Date: 20180516
  Receipt Date: 20180516
  Transmission Date: 20180711
  Serious: No
  Sender: FDA-Public Use
  Company Number: US-009507513-1805USA006119

PATIENT
  Age: 84 Year
  Sex: Male

DRUGS (3)
  1. COZAAR [Suspect]
     Active Substance: LOSARTAN POTASSIUM
     Dosage: 100 MG, DAILY
     Route: 048
     Dates: start: 2018
  2. COZAAR [Suspect]
     Active Substance: LOSARTAN POTASSIUM
     Indication: BLOOD PRESSURE MANAGEMENT
     Dosage: 100 MG, PER DAY
     Route: 048
     Dates: end: 201804
  3. COZAAR [Suspect]
     Active Substance: LOSARTAN POTASSIUM
     Dosage: 200 MG, PER DAY
     Route: 048
     Dates: start: 201804, end: 2018

REACTIONS (2)
  - Back pain [Unknown]
  - Drug ineffective [Recovering/Resolving]
